FAERS Safety Report 10183936 (Version 2)
Quarter: 2014Q2

REPORT INFORMATION
  Report Type: Spontaneous
  Country: US (occurrence: US)
  Receive Date: 20140520
  Receipt Date: 20140608
  Transmission Date: 20141212
  Serious: No
  Sender: FDA-Public Use
  Company Number: US-009507513-1405USA009985

PATIENT
  Age: 61 Year
  Sex: Female

DRUGS (2)
  1. OXYTROL FOR WOMEN [Suspect]
     Indication: HYPERTONIC BLADDER
     Dosage: UNK, UNKNOWN
     Route: 062
     Dates: start: 20140505, end: 20140506
  2. SIMVASTATIN [Concomitant]
     Indication: BLOOD CHOLESTEROL INCREASED
     Dosage: UNK, UNKNOWN
     Route: 048

REACTIONS (6)
  - Swelling [Unknown]
  - Urticaria [Unknown]
  - Pruritus [Recovered/Resolved]
  - Erythema [Unknown]
  - Drug administered at inappropriate site [Unknown]
  - Rash pruritic [Recovered/Resolved]
